FAERS Safety Report 5132854-8 (Version None)
Quarter: 2006Q4

REPORT INFORMATION
  Report Type: 
  Country: None (occurrence: None)
  Receive Date: 20061023
  Receipt Date: 20061010
  Transmission Date: 20070319
  Serious: Yes (Hospitalization, Other)
  Sender: FDA-Public Use
  Company Number: PHBS2006BR15834

PATIENT
  Age: 85 Year
  Sex: Male
  Weight: 82 kg

DRUGS (4)
  1. EXELON [Suspect]
     Indication: DEMENTIA ALZHEIMER'S TYPE
     Dosage: 9 MG/DAY
     Route: 048
     Dates: start: 19980101
  2. ADALAT - SLOW RELEASE [Concomitant]
     Indication: HYPERTENSION
     Dosage: 40 MG/DAY
     Route: 048
     Dates: start: 19960101
  3. AMARYL [Concomitant]
     Indication: DIABETES MELLITUS
     Dosage: 4 MG/DAY
     Route: 048
     Dates: start: 19980101
  4. PURAN T4 [Concomitant]
     Indication: HYPOTHYROIDISM
     Dosage: 125 MG/DAY
     Route: 048

REACTIONS (11)
  - ACTIVITIES OF DAILY LIVING IMPAIRED [None]
  - AGGRESSION [None]
  - AMNESTIC DISORDER [None]
  - APATHY [None]
  - COMMUNICATION DISORDER [None]
  - DECREASED ACTIVITY [None]
  - DEPRESSED LEVEL OF CONSCIOUSNESS [None]
  - GASTRITIS [None]
  - HYPERSOMNIA [None]
  - PNEUMONIA [None]
  - SINUSITIS [None]
